FAERS Safety Report 24344482 (Version 1)
Quarter: 2024Q3

REPORT INFORMATION
  Report Type: Spontaneous
  Country: IT (occurrence: IT)
  Receive Date: 20240920
  Receipt Date: 20240920
  Transmission Date: 20241017
  Serious: Yes (Other)
  Sender: GUERBET
  Company Number: None

PATIENT
  Age: 54 Year
  Sex: Male

DRUGS (6)
  1. LIPIODOL [Suspect]
     Active Substance: ETHIODIZED OIL
     Indication: Transcatheter arterial chemoembolisation
     Dosage: EPIRUBICIN- LIPIODOL MIXTURE, 5-10 ML LIPIODOL ULTRAFLUID
     Route: 013
  2. EPIRUBICIN HYDROCHLORIDE [Suspect]
     Active Substance: EPIRUBICIN HYDROCHLORIDE
     Indication: Transcatheter arterial chemoembolisation
     Dosage: 60 MG, CYCLIC (EPIRUBICIN- LIPIODOL MIXTURE)
     Route: 013
  3. MITOMYCIN [Suspect]
     Active Substance: MITOMYCIN
     Indication: Transcatheter arterial chemoembolisation
     Dosage: 10 MG, (INJECTED USING THE GENERALLY RECOMMENDED DILUTION FOR ENDOVASCULAR INFUSION/TACE).
     Route: 013
  4. IOPAMIDOL [Suspect]
     Active Substance: IOPAMIDOL
     Indication: Transcatheter arterial chemoembolisation
     Dosage: 2-4 ML IOPAMIDOL 300 MG / TRANSCATHETER CHEMOEMBOLIZATION
     Route: 013
  5. GELATIN [Suspect]
     Active Substance: GELATIN
     Indication: Transcatheter arterial chemoembolisation
  6. GELATIN [Suspect]
     Active Substance: GELATIN
     Indication: Embolism
     Route: 013

REACTIONS (5)
  - Hepatic artery occlusion [Unknown]
  - Thrombosis [Unknown]
  - Hepatic artery stenosis [Unknown]
  - Off label use [Unknown]
  - Product use issue [Unknown]
